FAERS Safety Report 7276297-X (Version None)
Quarter: 2011Q1

REPORT INFORMATION
  Report Type: 
  Country: None (occurrence: None)
  Receive Date: 20110204
  Receipt Date: 20110128
  Transmission Date: 20110831
  Serious: Yes (Hospitalization)
  Sender: FDA-Public Use
  Company Number: SE-SANOFI-AVENTIS-2011SA006747

PATIENT
  Age: 67 Year
  Sex: Female

DRUGS (7)
  1. GESTAPURAN [Concomitant]
     Dates: start: 19780101
  2. VIBRAMYCIN [Concomitant]
     Dates: start: 19980209
  3. SOMATROPIN [Concomitant]
     Indication: ADENOMA BENIGN
     Dates: start: 19960305
  4. LEVOTHYROXINE [Concomitant]
     Dates: start: 20050222
  5. KAVEPENIN [Concomitant]
     Dates: start: 19981201
  6. MINIRIN/DDAVP [Suspect]
     Route: 065
  7. CALCICHEW [Concomitant]
     Dates: start: 19971101

REACTIONS (2)
  - ANTIDIURETIC HORMONE ABNORMALITY [None]
  - OVERDOSE [None]
